FAERS Safety Report 6206781-9 (Version None)
Quarter: 2009Q2

REPORT INFORMATION
  Report Type: 
  Country: None (occurrence: None)
  Receive Date: 20090528
  Receipt Date: 20090515
  Transmission Date: 20091009
  Serious: Yes (Hospitalization)
  Sender: FDA-Public Use
  Company Number: IN-AVENTIS-200912746EU

PATIENT
  Age: 65 Year
  Sex: Female
  Weight: 70 kg

DRUGS (7)
  1. CLEXANE [Suspect]
     Indication: CORONARY ARTERY DISEASE
     Route: 058
  2. CLEXANE [Suspect]
     Route: 058
  3. CLOPIDOGREL [Concomitant]
     Route: 048
  4. ASPIRIN [Concomitant]
     Route: 048
  5. ATORVASTATIN CALCIUM [Concomitant]
     Route: 048
  6. NITROGLYCERIN [Concomitant]
     Route: 048
  7. TORSEMIDE [Concomitant]
     Route: 048

REACTIONS (3)
  - INJECTION SITE HAEMATOMA [None]
  - VASCULAR PSEUDOANEURYSM [None]
  - VESSEL PERFORATION [None]
